FAERS Safety Report 4973240-0 (Version None)
Quarter: 2006Q2

REPORT INFORMATION
  Report Type: 
  Country: None (occurrence: None)
  Receive Date: 20060414
  Receipt Date: 20041022
  Transmission Date: 20061013
  Serious: Yes (Other)
  Sender: FDA-Public Use
  Company Number: US-MERCK-0410USA03583

PATIENT
  Age: 75 Year
  Sex: Male
  Weight: 100 kg

DRUGS (2)
  1. VIOXX [Suspect]
     Indication: SPONDYLITIS
     Route: 048
     Dates: start: 20000101
  2. FLOMAX (MORNIFLUMATE) [Concomitant]
     Route: 065

REACTIONS (4)
  - ABNORMAL DREAMS [None]
  - CEREBROVASCULAR ACCIDENT [None]
  - SLEEP TERROR [None]
  - TREMOR [None]
